FAERS Safety Report 5532786-7 (Version None)
Quarter: 2007Q4

REPORT INFORMATION
  Report Type: 
  Country: None (occurrence: None)
  Receive Date: 20071129
  Receipt Date: 20071113
  Transmission Date: 20080405
  Serious: Yes (Hospitalization)
  Sender: FDA-Public Use
  Company Number: APP200700334

PATIENT
  Age: 74 Year
  Sex: Male

DRUGS (10)
  1. FLUOROURACIL [Suspect]
     Indication: CHEMOTHERAPY
     Dosage: 2500 MG, INTRAVENOUS
     Route: 042
     Dates: start: 20070820, end: 20070824
  2. OXALIPLATIN [Suspect]
     Indication: CHEMOTHERAPY
     Dosage: 80 MG, INTRAVENOUS
     Route: 042
     Dates: start: 20070820, end: 20070824
  3. HYDROCODONE BITARTRATE [Concomitant]
  4. LIPITOR [Concomitant]
  5. LISINOPRIL [Concomitant]
  6. MAALOX (ALUDROX) [Concomitant]
  7. PRILOSEC [Concomitant]
  8. TOPROL-XL [Concomitant]
  9. XYLOXYLIN [Concomitant]
  10. ZANTAC (RANITDINE) [Concomitant]

REACTIONS (4)
  - ANOREXIA [None]
  - DYSPHAGIA [None]
  - ODYNOPHAGIA [None]
  - WEIGHT DECREASED [None]
